FAERS Safety Report 21217641 (Version 5)
Quarter: 2025Q3

REPORT INFORMATION
  Report Type: Report from Study
  Country: EG (occurrence: EG)
  Receive Date: 20220816
  Receipt Date: 20250714
  Transmission Date: 20251020
  Serious: Yes (Other)
  Sender: NOVARTIS
  Company Number: EG-NOVARTISPH-NVSC2022EG014219

PATIENT
  Age: 18 Year
  Sex: Male

DRUGS (6)
  1. GILENYA [Suspect]
     Active Substance: FINGOLIMOD HYDROCHLORIDE
     Indication: Multiple sclerosis
     Dosage: 0.5 MG, QD
     Route: 048
     Dates: start: 202109
  2. GILENYA [Suspect]
     Active Substance: FINGOLIMOD HYDROCHLORIDE
     Dosage: 0.5 MG, QD
     Route: 048
     Dates: start: 202110, end: 202202
  3. CINNARIZINE [Concomitant]
     Active Substance: CINNARIZINE
     Indication: Dizziness
     Dosage: 1 DOSAGE FORM, BID
     Route: 065
     Dates: start: 202112
  4. Lucidril [Concomitant]
     Indication: Dizziness
     Dosage: UNK UNK, QD
     Route: 065
     Dates: start: 202105, end: 202107
  5. BENFOTIAMINE\CYANOCOBALAMIN\PYRIDOXINE HYDROCHLORIDE [Concomitant]
     Active Substance: BENFOTIAMINE\CYANOCOBALAMIN\PYRIDOXINE HYDROCHLORIDE
     Indication: Supplementation therapy
     Dosage: 1 DOSAGE FORM, QD
     Route: 048
     Dates: start: 202109
  6. BONE CARE [Concomitant]
     Active Substance: ATRACTYLODES LANCEA ROOT
     Indication: Supplementation therapy
     Dosage: 1 DOSAGE FORM, QD
     Route: 048
     Dates: start: 202109

REACTIONS (8)
  - White blood cell count increased [Unknown]
  - Urinary retention [Not Recovered/Not Resolved]
  - Hepatic enzyme increased [Unknown]
  - Multiple sclerosis [Recovered/Resolved]
  - Vision blurred [Recovered/Resolved]
  - Hepatic enzyme increased [Recovered/Resolved]
  - Disturbance in attention [Recovering/Resolving]
  - Inappropriate schedule of product administration [Recovering/Resolving]

NARRATIVE: CASE EVENT DATE: 20211113
